FAERS Safety Report 5366059-2 (Version None)
Quarter: 2007Q2

REPORT INFORMATION
  Report Type: 
  Country: None (occurrence: None)
  Receive Date: 20070605
  Receipt Date: 20061204
  Transmission Date: 20071010
  Serious: Yes (Other)
  Sender: FDA-Public Use
  Company Number: SPV1-2006-01971

PATIENT
  Sex: Male
  Weight: 63.9 kg

DRUGS (2)
  1. DAYTRANA [Suspect]
     Indication: PSYCHOMOTOR HYPERACTIVITY
     Dosage: 20 MG, TRANSDERMAL; 15 MG, TRANSDERMAL
     Route: 062
     Dates: end: 20061013
  2. DAYTRANA [Suspect]
     Indication: PSYCHOMOTOR HYPERACTIVITY
     Dosage: 20 MG, TRANSDERMAL; 15 MG, TRANSDERMAL
     Route: 062
     Dates: start: 20061013, end: 20061019

REACTIONS (1)
  - ANGIOEDEMA [None]
